FAERS Safety Report 18747130 (Version 1)
Quarter: 2021Q1

REPORT INFORMATION
  Report Type: Other
  Country: US (occurrence: US)
  Receive Date: 20210115
  Receipt Date: 20210115
  Transmission Date: 20210419
  Serious: Yes (Other)
  Sender: FDA-Public Use
  Company Number: US-AJANTA PHARMA USA INC.-2105383

PATIENT
  Age: 68 Year
  Sex: Female

DRUGS (1)
  1. DOXYCYCLINE HYCLATE (ANDA 211012) [Suspect]
     Active Substance: DOXYCYCLINE HYCLATE
     Indication: UPPER RESPIRATORY TRACT INFECTION

REACTIONS (3)
  - Acute kidney injury [Recovered/Resolved]
  - Anti-neutrophil cytoplasmic antibody positive vasculitis [Recovered/Resolved]
  - Glomerulonephritis rapidly progressive [Recovered/Resolved]
